FAERS Safety Report 8822425 (Version 1)
Quarter: 2012Q4

REPORT INFORMATION
  Report Type: 
  Country: TT (occurrence: TT)
  Receive Date: 20121003
  Receipt Date: 20121003
  Transmission Date: 20130627
  Serious: Yes (Other)
  Sender: FDA-Public Use
  Company Number: PHHY2012TT085054

PATIENT

DRUGS (2)
  1. IMATINIB [Suspect]
     Indication: CHRONIC MYELOID LEUKAEMIA
     Dosage: 400 mg, daily
  2. IMMUNOSUPPRESSANTS [Concomitant]
     Indication: ANAEMIA HAEMOLYTIC AUTOIMMUNE

REACTIONS (1)
  - Anaemia haemolytic autoimmune [Recovering/Resolving]
